FAERS Safety Report 14363686 (Version 1)
Quarter: 2018Q1

REPORT INFORMATION
  Report Type: Spontaneous
  Country: FR (occurrence: FR)
  Receive Date: 20180108
  Receipt Date: 20180108
  Transmission Date: 20180509
  Serious: Yes (Other)
  Sender: FDA-Public Use
  Company Number: FR-BAYER-2017-250670

PATIENT
  Age: 41 Year
  Sex: Female
  Weight: 95 kg

DRUGS (2)
  1. MIRENA [Suspect]
     Active Substance: LEVONORGESTREL
     Indication: CONTRACEPTION
     Dosage: 20 ?G, UNK
     Route: 015
     Dates: start: 20150617, end: 201711
  2. MIRENA [Suspect]
     Active Substance: LEVONORGESTREL

REACTIONS (15)
  - Abdominal pain [Recovering/Resolving]
  - Mood swings [Recovering/Resolving]
  - Depression [Recovering/Resolving]
  - Visual impairment [Recovering/Resolving]
  - Back pain [Recovering/Resolving]
  - Myalgia [Recovering/Resolving]
  - Weight loss poor [Recovering/Resolving]
  - Amnesia [Recovering/Resolving]
  - Tendonitis [Recovering/Resolving]
  - Irritability [Recovering/Resolving]
  - Pollakiuria [Recovering/Resolving]
  - Loss of libido [Recovering/Resolving]
  - Breast pain [Recovering/Resolving]
  - Fatigue [Recovering/Resolving]
  - Headache [Recovering/Resolving]

NARRATIVE: CASE EVENT DATE: 201506
